FAERS Safety Report 6411275-1 (Version None)
Quarter: 2009Q4

REPORT INFORMATION
  Report Type: 
  Country: None (occurrence: None)
  Receive Date: 20091023
  Receipt Date: 20091013
  Transmission Date: 20100525
  Serious: Yes (Other)
  Sender: FDA-Public Use
  Company Number: GB-RANBAXY-2009RR-28228

PATIENT
  Sex: Female

DRUGS (2)
  1. PARACETAMOL [Suspect]
     Indication: MIGRAINE
     Dosage: 500 MG, UNK
  2. SOLPADEINE PLUS [Concomitant]
     Indication: MIGRAINE

REACTIONS (2)
  - DYSPNOEA [None]
  - HYPERHIDROSIS [None]
